FAERS Safety Report 9882973 (Version 6)
Quarter: 2014Q3

REPORT INFORMATION
  Report Type: Spontaneous
  Country: JP (occurrence: None)
  Receive Date: 20140204
  Receipt Date: 20140703
  Transmission Date: 20150326
  Serious: Yes (Hospitalization)
  Sender: FDA-Public Use
  Company Number: 2014JP002993

PATIENT
  Age: 71 Year
  Sex: Male
  Weight: 75 kg

DRUGS (12)
  1. PREDNISOLONE (PREDNISOLONE) [Concomitant]
     Active Substance: PREDNISOLONE
  2. WARFARIN (WARFARIN) [Concomitant]
     Active Substance: WARFARIN
  3. OLMETEC (OLMESARTAN MEDOXOMIL) [Concomitant]
     Active Substance: OLMESARTAN MEDOXOMIL
  4. MUCOSTA (REBAMIPIDE) [Concomitant]
  5. HIRUDOID (MUCOPOLYSACCHARIDE POLYSULFURIC ACID ESTER) [Concomitant]
  6. RINDERON VG (BETAMETHASONE VALERATE, GENTAMICIN SULFATE) [Concomitant]
  7. BAYASPIRIN (ACETYLSALICYLIC ACID) [Concomitant]
  8. FOIPAN (CAMOSTAT MESILATE) [Concomitant]
  9. ALMETA (ALCLOMETASONE DIPROPIONATE) [Concomitant]
  10. PONATINIB [Suspect]
     Active Substance: PONATINIB
     Indication: CHRONIC MYELOID LEUKAEMIA
     Route: 048
     Dates: start: 20130213
  11. ALLEGRA [Concomitant]
     Active Substance: FEXOFENADINE HYDROCHLORIDE
  12. FEBURIC (FEBUXOSTAT) [Concomitant]
     Active Substance: FEBUXOSTAT

REACTIONS (12)
  - Hypertension [None]
  - Sleep apnoea syndrome [None]
  - Electrocardiogram ST segment depression [None]
  - Hyperthyroidism [None]
  - Refusal of treatment by patient [None]
  - Arterial thrombosis [None]
  - Atrial fibrillation [None]
  - Bundle branch block right [None]
  - Cardiac disorder [None]
  - Bradycardia [None]
  - Atrioventricular block complete [None]
  - Hyperlipidaemia [None]

NARRATIVE: CASE EVENT DATE: 20140122
